FAERS Safety Report 6391536-5 (Version None)
Quarter: 2009Q4

REPORT INFORMATION
  Report Type: 
  Country: None (occurrence: None)
  Receive Date: 20091007
  Receipt Date: 20090923
  Transmission Date: 20100525
  Serious: Yes (Hospitalization)
  Sender: FDA-Public Use
  Company Number: CH-PFIZER INC-2009273401

PATIENT
  Age: 68 Year

DRUGS (9)
  1. ALDACTONE [Suspect]
     Dosage: 25 MG, DAILY
     Dates: end: 20090803
  2. DIAMICRON MR [Suspect]
     Dosage: 30 MG, 2X/DAY
     Route: 048
     Dates: end: 20090803
  3. TORSEMIDE [Suspect]
     Dosage: 30 MG, DAILY
     Route: 048
     Dates: end: 20090803
  4. SINTROM [Concomitant]
     Dosage: UNK
  5. LYRICA [Concomitant]
     Dosage: UNK
  6. ASPIRIN [Concomitant]
     Dosage: 100 MG, 1X/DAY
  7. ATORVASTATIN CALCIUM [Concomitant]
     Dosage: UNK
  8. DIOVAN [Concomitant]
     Dosage: UNK
  9. BELOC ZOK [Concomitant]
     Dosage: UNK

REACTIONS (3)
  - HYPERKALAEMIA [None]
  - HYPOGLYCAEMIA [None]
  - RENAL FAILURE CHRONIC [None]
